FAERS Safety Report 11424059 (Version 1)
Quarter: 2015Q3

REPORT INFORMATION
  Report Type: Spontaneous
  Country: US (occurrence: US)
  Receive Date: 20150827
  Receipt Date: 20150827
  Transmission Date: 20151125
  Serious: Yes (Other)
  Sender: FDA-Public Use
  Company Number: US-BAYER-2015-407416

PATIENT
  Age: 38 Year
  Sex: Female
  Weight: 54.42 kg

DRUGS (4)
  1. RID 1-2-3 SYSTEM [Suspect]
     Active Substance: PIPERONYL BUTOXIDE\PYRETHRUM EXTRACT
     Indication: LICE INFESTATION
     Dosage: 1 DOSE (DAY 1)
     Route: 061
     Dates: start: 20150811, end: 20150811
  2. RID 1-2-3 SYSTEM [Suspect]
     Active Substance: PIPERONYL BUTOXIDE\PYRETHRUM EXTRACT
     Indication: LICE INFESTATION
     Dosage: 1 DOSE (DAY 7)
     Route: 061
     Dates: start: 20150817, end: 20150817
  3. RID 1-2-3 SYSTEM [Suspect]
     Active Substance: PIPERONYL BUTOXIDE\PYRETHRUM EXTRACT
     Indication: LICE INFESTATION
     Dosage: 1 DOSE (DAY 7)
     Route: 061
     Dates: start: 20150817, end: 20150817
  4. RID 1-2-3 SYSTEM [Suspect]
     Active Substance: PIPERONYL BUTOXIDE\PYRETHRUM EXTRACT
     Indication: LICE INFESTATION
     Dosage: 1 DOSE (DAY 1)
     Route: 061
     Dates: start: 20150811, end: 20150811

REACTIONS (3)
  - Skin lesion [Not Recovered/Not Resolved]
  - Skin haemorrhage [Recovered/Resolved]
  - Mass [Not Recovered/Not Resolved]

NARRATIVE: CASE EVENT DATE: 20150817
